FAERS Safety Report 6892549-7 (Version None)
Quarter: 2010Q3

REPORT INFORMATION
  Report Type: 
  Country: None (occurrence: None)
  Receive Date: 20100731
  Receipt Date: 20080623
  Transmission Date: 20110219
  Serious: No
  Sender: FDA-Public Use
  Company Number: US-PFIZER INC-2008027450

PATIENT
  Sex: Male
  Weight: 51.26 kg

DRUGS (2)
  1. FLAGYL [Suspect]
     Indication: CROHN'S DISEASE
     Route: 048
     Dates: start: 20070701
  2. ASACOL [Suspect]

REACTIONS (3)
  - ADVERSE EVENT [None]
  - ALANINE AMINOTRANSFERASE INCREASED [None]
  - ASPARTATE AMINOTRANSFERASE INCREASED [None]
